FAERS Safety Report 17865993 (Version 4)
Quarter: 2021Q1

REPORT INFORMATION
  Report Type: Report from Study
  Country: AR (occurrence: AR)
  Receive Date: 20200605
  Receipt Date: 20210322
  Transmission Date: 20210419
  Serious: Yes (Hospitalization, Other)
  Sender: FDA-Public Use
  Company Number: AR-EMD SERONO-9166239

PATIENT
  Age: 27 Year
  Sex: Female

DRUGS (4)
  1. MAVENCLAD [Suspect]
     Active Substance: CLADRIBINE
     Indication: MULTIPLE SCLEROSIS
     Dosage: YEAR ONE MONTH ONE THERAPY: TWO TABLET ON DAY 1 AND ONE TABLET ON DAYS 2 TO 5.
     Route: 048
     Dates: start: 20191008, end: 20191012
  2. MAVENCLAD [Suspect]
     Active Substance: CLADRIBINE
     Dosage: YEAR TWO MONTH TWO THERAPY.
     Route: 048
     Dates: start: 20210301, end: 20210305
  3. MAVENCLAD [Suspect]
     Active Substance: CLADRIBINE
     Dosage: YEAR ONE MONTH TWO THERAPY: TWO TABLET ON DAY 1 AND ONE TABLET ON DAYS 2 TO 5.
     Route: 048
     Dates: start: 20191104, end: 20191108
  4. MAVENCLAD [Suspect]
     Active Substance: CLADRIBINE
     Dosage: YEAR TWO MONTH ONE THERAPY.
     Route: 048
     Dates: start: 20210118, end: 20210122

REACTIONS (28)
  - Diarrhoea [Recovered/Resolved]
  - Decreased appetite [Unknown]
  - Hyperaesthesia [Not Recovered/Not Resolved]
  - Nausea [Unknown]
  - Abdominal pain upper [Unknown]
  - Haemoglobin decreased [Unknown]
  - Hemiparesis [Unknown]
  - Anisocytosis [Unknown]
  - Lymphocyte count decreased [Unknown]
  - Pain in extremity [Not Recovered/Not Resolved]
  - Oral disorder [Unknown]
  - Palpitations [Recovered/Resolved]
  - Platelet count decreased [Unknown]
  - Faeces discoloured [Unknown]
  - Discomfort [Unknown]
  - Dysaesthesia [Not Recovered/Not Resolved]
  - Contusion [Recovered/Resolved]
  - Vomiting [Unknown]
  - Abdominal pain lower [Unknown]
  - Headache [Recovered/Resolved]
  - Optic nerve disorder [Not Recovered/Not Resolved]
  - Vision blurred [Not Recovered/Not Resolved]
  - Asthenia [Unknown]
  - Hypochromasia [Unknown]
  - Hemianaesthesia [Unknown]
  - Swelling [Not Recovered/Not Resolved]
  - Monocytosis [Not Recovered/Not Resolved]
  - Micturition disorder [Unknown]

NARRATIVE: CASE EVENT DATE: 201910
